FAERS Safety Report 17907741 (Version 2)
Quarter: 2020Q2

REPORT INFORMATION
  Report Type: Spontaneous
  Country: FR (occurrence: FR)
  Receive Date: 20200617
  Receipt Date: 20200629
  Transmission Date: 20200714
  Serious: Yes (Hospitalization)
  Sender: FDA-Public Use
  Company Number: FR-PFIZER INC-2020232030

PATIENT
  Age: 45 Year
  Sex: Female
  Weight: 57 kg

DRUGS (11)
  1. DOXORUBICIN HCL [Suspect]
     Active Substance: DOXORUBICIN HYDROCHLORIDE
     Indication: BREAST CANCER
     Dosage: 391 MG
     Route: 042
     Dates: start: 20200228, end: 20200409
  2. PACLITAXEL. [Concomitant]
     Active Substance: PACLITAXEL
     Indication: BREAST CANCER
     Dosage: 260 MG
     Route: 042
     Dates: start: 20200423, end: 20200430
  3. APREPITANT. [Concomitant]
     Active Substance: APREPITANT
     Dosage: 125 MG, CYCLIC( 1 HOUR BEFORE CHEMOTHERAPY
     Dates: start: 20200228, end: 20200409
  4. AERIUS (DESLORATADINE) [Concomitant]
     Active Substance: DESLORATADINE
     Dosage: UNK
  5. METOPIMAZINE [Concomitant]
     Active Substance: METOPIMAZINE
     Dosage: 3 DF, 1X/DAY (1 LYOPHILIZAT 3 TO 4 TIMES PER DAY IN SYSTEMIC FOR 3 DAYS)
  6. TITANOREINE [CHONDRUS CRISPUS EXTRACT;TITANIUM DIOXIDE;ZINC OXIDE] [Concomitant]
     Dosage: UNK
  7. METHYLPREDNISOLONE. [Concomitant]
     Active Substance: METHYLPREDNISOLONE
     Dosage: 80 MG, CYCLIC (BEFORE CHEMOTHERAPY COURSE)
     Route: 042
  8. ONDANSETRON [Concomitant]
     Active Substance: ONDANSETRON
     Dosage: 8 MG, CYCLIC (BEFORE CHEMOTHERAPY COURSE)
     Route: 042
  9. CYCLOPHOSPHAMIDE. [Suspect]
     Active Substance: CYCLOPHOSPHAMIDE
     Indication: BREAST CANCER
     Dosage: 3920 MG
     Route: 042
     Dates: start: 20200228, end: 20200409
  10. BEPANTHEN [DEXPANTHENOL] [Concomitant]
     Active Substance: DEXPANTHENOL
     Dosage: UNK
  11. PREDNISOLONE. [Concomitant]
     Active Substance: PREDNISOLONE
     Dosage: 60 MG, CYCLIC (4 TABLETS OF 20 MG IN THE MORNING FOR 3 DAYS DURING 3 DAYS AFTER CHEMOTHERAPY COURSE
     Route: 048

REACTIONS (2)
  - Lymphopenia [Recovering/Resolving]
  - Pneumocystis jirovecii pneumonia [Not Recovered/Not Resolved]

NARRATIVE: CASE EVENT DATE: 20200325
